FAERS Safety Report 7874814-X (Version None)
Quarter: 2011Q4

REPORT INFORMATION
  Report Type: 
  Country: None (occurrence: None)
  Receive Date: 20111031
  Receipt Date: 20111026
  Transmission Date: 20120403
  Serious: Yes (Hospitalization)
  Sender: FDA-Public Use
  Company Number: FR-SP-E2011-06326

PATIENT
  Sex: Female

DRUGS (8)
  1. REMICADE [Suspect]
     Indication: RHEUMATOID ARTHRITIS
     Route: 042
     Dates: start: 20111011, end: 20111011
  2. TUBERSOL [Suspect]
     Indication: TUBERCULIN TEST
     Route: 023
     Dates: start: 20111011, end: 20111011
  3. PREDNISONE [Concomitant]
  4. PANTOPRAZOLE [Concomitant]
  5. ESCITALOPRAM [Concomitant]
  6. XANAX [Concomitant]
  7. SOLU-MEDROL [Suspect]
  8. CONTRAMAL (TRAMADOL) CONTRAMAL (TRAMADOL) [Concomitant]

REACTIONS (1)
  - ANGIOEDEMA [None]
